FAERS Safety Report 8340637-0 (Version None)
Quarter: 2012Q2

REPORT INFORMATION
  Report Type: 
  Country: None (occurrence: None)
  Receive Date: 20120507
  Receipt Date: 20120427
  Transmission Date: 20120825
  Serious: Yes (Hospitalization, Other)
  Sender: FDA-Public Use
  Company Number: US-ABBOTT-12P-163-0931370-00

PATIENT
  Sex: Male

DRUGS (1)
  1. HUMIRA [Suspect]
     Indication: MATERNAL EXPOSURE TIMING UNSPECIFIED
     Route: 064

REACTIONS (6)
  - BREECH PRESENTATION [None]
  - RESPIRATORY DISORDER [None]
  - PNEUMONIA [None]
  - BRONCHITIS [None]
  - NEONATAL ASPIRATION [None]
  - FOETAL EXPOSURE DURING PREGNANCY [None]
